FAERS Safety Report 6218248-2 (Version None)
Quarter: 2009Q2

REPORT INFORMATION
  Report Type: 
  Country: None (occurrence: None)
  Receive Date: 20090604
  Receipt Date: 20090604
  Transmission Date: 20091009
  Serious: Yes (Life-Threatening)
  Sender: FDA-Public Use
  Company Number: None

PATIENT
  Age: 42 Year
  Sex: Female
  Weight: 68.0396 kg

DRUGS (1)
  1. MIRENA [Suspect]
     Dates: start: 20050101

REACTIONS (1)
  - BREAST CANCER [None]
